FAERS Safety Report 24193589 (Version 2)
Quarter: 2025Q1

REPORT INFORMATION
  Report Type: Report from Study
  Country: GB (occurrence: GB)
  Receive Date: 20240809
  Receipt Date: 20250305
  Transmission Date: 20250409
  Serious: Yes (Other)
  Sender: NOVARTIS
  Company Number: GB-002147023-NVSC2024GB161010

PATIENT
  Age: 40 Year
  Sex: Female

DRUGS (1)
  1. MAYZENT [Suspect]
     Active Substance: SIPONIMOD
     Indication: Secondary progressive multiple sclerosis
     Dosage: 2 MG, QD
     Route: 048
     Dates: start: 20240708, end: 20240715

REACTIONS (2)
  - Neoplasm malignant [Unknown]
  - Colon cancer [Unknown]

NARRATIVE: CASE EVENT DATE: 20240715
